FAERS Safety Report 19450401 (Version 4)
Quarter: 2021Q3

REPORT INFORMATION
  Report Type: Spontaneous
  Country: US (occurrence: US)
  Receive Date: 20210622
  Receipt Date: 20210914
  Transmission Date: 20211014
  Serious: Yes (Other)
  Sender: FDA-Public Use
  Company Number: US-009507513-2106USA003500

PATIENT
  Sex: Female

DRUGS (6)
  1. ZOMETA [Suspect]
     Active Substance: ZOLEDRONIC ACID
     Indication: METASTASES TO BONE
  2. LENVATINIB MESYLATE [Suspect]
     Active Substance: LENVATINIB MESYLATE
     Indication: METASTASES TO BONE
     Dosage: 10 MILLIGRAM, DAILY
     Dates: start: 202107
  3. KEYTRUDA [Suspect]
     Active Substance: PEMBROLIZUMAB
     Indication: METASTASES TO BONE
     Dosage: UNK
     Dates: start: 20210608
  4. LENVATINIB MESYLATE [Suspect]
     Active Substance: LENVATINIB MESYLATE
     Indication: ENDOMETRIAL CANCER
     Dosage: 20 MILLIGRAM, DAILY
     Dates: start: 20210602, end: 202107
  5. KEYTRUDA [Suspect]
     Active Substance: PEMBROLIZUMAB
     Indication: ENDOMETRIAL CANCER
     Dosage: UNK
     Dates: start: 202106
  6. ZOMETA [Suspect]
     Active Substance: ZOLEDRONIC ACID
     Indication: ENDOMETRIAL CANCER
     Dosage: UNK

REACTIONS (14)
  - Sleep disorder [Unknown]
  - Hypertension [Unknown]
  - Abdominal distension [Unknown]
  - Decreased appetite [Unknown]
  - Tongue discolouration [Unknown]
  - Gastrointestinal motility disorder [Unknown]
  - Fatigue [Unknown]
  - Ill-defined disorder [Unknown]
  - Pancreatitis [Recovering/Resolving]
  - Depression [Unknown]
  - Glossodynia [Unknown]
  - Nausea [Unknown]
  - Thyroid disorder [Unknown]
  - Weight decreased [Unknown]

NARRATIVE: CASE EVENT DATE: 2021
